FAERS Safety Report 19370710 (Version 3)
Quarter: 2021Q4

REPORT INFORMATION
  Report Type: Report from Study
  Country: KR (occurrence: KR)
  Receive Date: 20210604
  Receipt Date: 20211108
  Transmission Date: 20220304
  Serious: Yes (Other)
  Sender: FDA-Public Use
  Company Number: KR-KYOWAKIRIN-2021AKK009440

PATIENT
  Age: 71 Year
  Sex: Female

DRUGS (120)
  1. FILGRASTIM [Suspect]
     Active Substance: FILGRASTIM
     Indication: Product used for unknown indication
     Dosage: 0.7 UNK
     Route: 065
     Dates: start: 20110430, end: 20110430
  2. FILGRASTIM [Suspect]
     Active Substance: FILGRASTIM
     Dosage: 300 UNK
     Route: 065
     Dates: start: 20110804, end: 20110804
  3. FILGRASTIM [Suspect]
     Active Substance: FILGRASTIM
     Dosage: 300 UNK
     Route: 065
     Dates: start: 20110824, end: 20110824
  4. FILGRASTIM [Suspect]
     Active Substance: FILGRASTIM
     Dosage: 300 UNK
     Route: 065
     Dates: start: 20110830, end: 20110830
  5. DECITABINE [Concomitant]
     Active Substance: DECITABINE
     Indication: Product used for unknown indication
     Dosage: 20 UNK, QD
     Dates: start: 20110411, end: 20110411
  6. DECITABINE [Concomitant]
     Active Substance: DECITABINE
     Dosage: 20 UNK, QD
     Dates: start: 20110412, end: 20110412
  7. DECITABINE [Concomitant]
     Active Substance: DECITABINE
     Dosage: 20 UNK, QD
     Dates: start: 20110413, end: 20110413
  8. DECITABINE [Concomitant]
     Active Substance: DECITABINE
     Dosage: 20 UNK, QD
     Dates: start: 20110414, end: 20110414
  9. DECITABINE [Concomitant]
     Active Substance: DECITABINE
     Dosage: 20 UNK, QD
     Dates: start: 20110415, end: 20110415
  10. DECITABINE [Concomitant]
     Active Substance: DECITABINE
     Dosage: 20 UNK, QD
     Dates: start: 20110416, end: 20110416
  11. DECITABINE [Concomitant]
     Active Substance: DECITABINE
     Dosage: 20 UNK, QD
     Dates: start: 20110517, end: 20110517
  12. DECITABINE [Concomitant]
     Active Substance: DECITABINE
     Dosage: 20 UNK, QD
     Dates: start: 20110518, end: 20110518
  13. DECITABINE [Concomitant]
     Active Substance: DECITABINE
     Dosage: 20 UNK, QD
     Dates: start: 20110519, end: 20110519
  14. DECITABINE [Concomitant]
     Active Substance: DECITABINE
     Dosage: 20 UNK, QD
     Dates: start: 20110520, end: 20110520
  15. DECITABINE [Concomitant]
     Active Substance: DECITABINE
     Dosage: 20 UNK, QD
     Dates: start: 20110620, end: 20110620
  16. DECITABINE [Concomitant]
     Active Substance: DECITABINE
     Dosage: 20 UNK, QD
     Dates: start: 20110621, end: 20110621
  17. DECITABINE [Concomitant]
     Active Substance: DECITABINE
     Dosage: 20 UNK, QD
     Dates: start: 20110622, end: 20110622
  18. DECITABINE [Concomitant]
     Active Substance: DECITABINE
     Dosage: 20 UNK, QD
     Dates: start: 20110623, end: 20110623
  19. DECITABINE [Concomitant]
     Active Substance: DECITABINE
     Dosage: 20 UNK, QD
     Dates: start: 20110624, end: 20110624
  20. DECITABINE [Concomitant]
     Active Substance: DECITABINE
     Dosage: 20 UNK, QD
     Dates: start: 20110718, end: 20110718
  21. DECITABINE [Concomitant]
     Active Substance: DECITABINE
     Dosage: 20 UNK, QD
     Dates: start: 20110719, end: 20110719
  22. DECITABINE [Concomitant]
     Active Substance: DECITABINE
     Dosage: 20 UNK, QD
     Dates: start: 20110720, end: 20110720
  23. DECITABINE [Concomitant]
     Active Substance: DECITABINE
     Dosage: 20 UNK, QD
     Dates: start: 20110721, end: 20110721
  24. DECITABINE [Concomitant]
     Active Substance: DECITABINE
     Dosage: 20 UNK, QD
     Dates: start: 20110722, end: 20110722
  25. DECITABINE [Concomitant]
     Active Substance: DECITABINE
     Dosage: 20 UNK, QD
     Dates: start: 20110816, end: 20110816
  26. DECITABINE [Concomitant]
     Active Substance: DECITABINE
     Dosage: 20 UNK, QD
     Dates: start: 20110817, end: 20110817
  27. DECITABINE [Concomitant]
     Active Substance: DECITABINE
     Dosage: 20 UNK, QD
     Dates: start: 20110818, end: 20110818
  28. DECITABINE [Concomitant]
     Active Substance: DECITABINE
     Dosage: 20 UNK, QD
     Dates: start: 20110819, end: 20110819
  29. DECITABINE [Concomitant]
     Active Substance: DECITABINE
     Dosage: 20 UNK, QD
     Dates: start: 20110822, end: 20110822
  30. ACETYLCYSTEINE [Concomitant]
     Active Substance: ACETYLCYSTEINE
     Indication: Product used for unknown indication
     Dosage: 200 MILLIGRAM
     Dates: start: 20110411, end: 20110413
  31. ACETYLCYSTEINE [Concomitant]
     Active Substance: ACETYLCYSTEINE
     Dosage: 600 MILLIGRAM
     Dates: start: 20110411, end: 20110413
  32. ACETYLCYSTEINE [Concomitant]
     Active Substance: ACETYLCYSTEINE
     Dosage: 600 MILLIGRAM
     Dates: start: 20110429, end: 20110503
  33. ACETYLCYSTEINE [Concomitant]
     Active Substance: ACETYLCYSTEINE
     Dosage: 600 MILLIGRAM
     Dates: start: 20110509
  34. ACYCLOVIR [Concomitant]
     Active Substance: ACYCLOVIR
     Indication: Product used for unknown indication
     Dosage: 400 MILLIGRAM
     Dates: start: 20110620, end: 20110717
  35. ACYCLOVIR [Concomitant]
     Active Substance: ACYCLOVIR
     Dosage: 400 MILLIGRAM
     Dates: start: 20110718, end: 20110816
  36. ACYCLOVIR [Concomitant]
     Active Substance: ACYCLOVIR
     Dosage: 400 MILLIGRAM
     Dates: start: 20110816, end: 20110831
  37. ACYCLOVIR [Concomitant]
     Active Substance: ACYCLOVIR
     Dosage: 600 MILLIGRAM
     Dates: start: 20110411, end: 20110428
  38. ACYCLOVIR [Concomitant]
     Active Substance: ACYCLOVIR
     Dosage: 600 MILLIGRAM
     Dates: start: 20110516, end: 20110528
  39. ALPRAZOLAM [Concomitant]
     Active Substance: ALPRAZOLAM
     Indication: Product used for unknown indication
     Dosage: 0.5 MILLIGRAM
     Dates: start: 20110412, end: 20110422
  40. AMIKACIN [Concomitant]
     Active Substance: AMIKACIN
     Indication: Product used for unknown indication
     Dosage: 500 MILLIGRAM
     Dates: start: 20110529
  41. AMITRIPTYLINE [Concomitant]
     Active Substance: AMITRIPTYLINE
     Indication: Product used for unknown indication
     Dosage: 10 MILLIGRAM
     Dates: start: 20110411, end: 20110413
  42. AMITRIPTYLINE [Concomitant]
     Active Substance: AMITRIPTYLINE
     Dosage: 10 MILLIGRAM
     Dates: start: 20110414, end: 20110421
  43. AMITRIPTYLINE [Concomitant]
     Active Substance: AMITRIPTYLINE
     Dosage: 10 MILLIGRAM
     Dates: start: 20110414, end: 20110428
  44. AMLODIPINE [Concomitant]
     Active Substance: AMLODIPINE BESYLATE
     Indication: Product used for unknown indication
     Dosage: 5 MILLIGRAM
     Dates: start: 20110411, end: 20110414
  45. AMLODIPINE [Concomitant]
     Active Substance: AMLODIPINE BESYLATE
     Dosage: 5 MILLIGRAM
     Dates: start: 20110830, end: 20110830
  46. BISACODYL [Concomitant]
     Active Substance: BISACODYL
     Indication: Product used for unknown indication
     Dosage: 2 DOSAGE FORM
     Dates: start: 20110819
  47. CANDESARTAN [Concomitant]
     Active Substance: CANDESARTAN
     Indication: Product used for unknown indication
     Dosage: 16 MILLIGRAM
     Dates: start: 20110509
  48. CARVEDILOL [Concomitant]
     Active Substance: CARVEDILOL
     Dosage: 6.25 MILLIGRAM
     Dates: start: 20110504, end: 20110506
  49. CEFEPIME [Concomitant]
     Active Substance: CEFEPIME HYDROCHLORIDE
     Indication: Product used for unknown indication
     Dosage: 6000 MILLIGRAM
     Dates: start: 20110422, end: 20110428
  50. CEFEPIME [Concomitant]
     Active Substance: CEFEPIME HYDROCHLORIDE
     Dosage: 6000 MILLIGRAM
     Dates: start: 20110516, end: 20110528
  51. CHLORPHENIRAMINE MALEATE [Concomitant]
     Active Substance: CHLORPHENIRAMINE MALEATE
     Indication: Product used for unknown indication
     Dosage: 4 MILLIGRAM
     Dates: start: 20110411, end: 20110411
  52. CHLORPHENIRAMINE MALEATE [Concomitant]
     Active Substance: CHLORPHENIRAMINE MALEATE
     Dosage: 4 MILLIGRAM
     Dates: start: 20110421, end: 20110423
  53. CHLORPHENIRAMINE MALEATE [Concomitant]
     Active Substance: CHLORPHENIRAMINE MALEATE
     Dosage: 4 MILLIGRAM
     Dates: start: 20110426, end: 20110426
  54. CHLORPHENIRAMINE MALEATE [Concomitant]
     Active Substance: CHLORPHENIRAMINE MALEATE
     Dosage: 4 MILLIGRAM
     Dates: start: 20110428
  55. CHLORPHENIRAMINE MALEATE [Concomitant]
     Active Substance: CHLORPHENIRAMINE MALEATE
     Dosage: 4 MILLIGRAM
     Dates: start: 20110830, end: 20110830
  56. CHLORPHENIRAMINE MALEATE [Concomitant]
     Active Substance: CHLORPHENIRAMINE MALEATE
     Dosage: 8 MILLIGRAM
     Dates: start: 20110424, end: 20110424
  57. CHLORPHENIRAMINE MALEATE [Concomitant]
     Active Substance: CHLORPHENIRAMINE MALEATE
     Dosage: 8 MILLIGRAM
     Dates: start: 20110427, end: 20110427
  58. CIPROFLOXACIN [Concomitant]
     Active Substance: CIPROFLOXACIN
     Indication: Product used for unknown indication
     Dosage: 500 MILLIGRAM
     Dates: start: 20110415, end: 20110421
  59. CIPROFLOXACIN [Concomitant]
     Active Substance: CIPROFLOXACIN
     Dosage: 1000 MILLIGRAM
     Dates: start: 20110620, end: 20110717
  60. CIPROFLOXACIN [Concomitant]
     Active Substance: CIPROFLOXACIN
     Dosage: 1000 MILLIGRAM
     Dates: start: 20110718, end: 20110816
  61. CIPROFLOXACIN [Concomitant]
     Active Substance: CIPROFLOXACIN
     Dosage: 1000 MILLIGRAM
     Dates: start: 20110816, end: 20110831
  62. CLONAZEPAM [Concomitant]
     Active Substance: CLONAZEPAM
     Indication: Product used for unknown indication
     Dosage: 0.5 MILLIGRAM
     Dates: start: 20110411, end: 20110422
  63. CLONAZEPAM [Concomitant]
     Active Substance: CLONAZEPAM
     Dosage: 0.5 MILLIGRAM
     Dates: start: 20110411, end: 20110427
  64. DEFERASIROX [Concomitant]
     Active Substance: DEFERASIROX
     Indication: Product used for unknown indication
     Dosage: 500 MILLIGRAM
     Dates: start: 20110830
  65. DEFERASIROX [Concomitant]
     Active Substance: DEFERASIROX
     Dosage: 1000 MILLIGRAM
     Dates: start: 20110429
  66. DIOSMIN [Concomitant]
     Active Substance: DIOSMIN
     Indication: Product used for unknown indication
     Dosage: 1000 MILLIGRAM
     Dates: start: 20110830
  67. FELODIPINE [Concomitant]
     Active Substance: FELODIPINE
     Indication: Product used for unknown indication
     Dosage: 5 MILLIGRAM
     Dates: start: 20110501, end: 20110505
  68. FEXOFENADINE [Concomitant]
     Active Substance: FEXOFENADINE HYDROCHLORIDE
     Indication: Product used for unknown indication
     Dosage: 360 MILLIGRAM
     Dates: start: 20110509, end: 20110509
  69. FEXOFENADINE [Concomitant]
     Active Substance: FEXOFENADINE HYDROCHLORIDE
     Dosage: 360 MILLIGRAM
     Dates: start: 20110511
  70. FEXOFENADINE [Concomitant]
     Active Substance: FEXOFENADINE HYDROCHLORIDE
     Dosage: 540 MILLIGRAM
     Dates: start: 20110510, end: 20110510
  71. DEXTROSE [Concomitant]
     Active Substance: DEXTROSE
     Indication: Product used for unknown indication
     Dosage: 50 UNK
     Dates: start: 20110830, end: 20110830
  72. HYALURONIC ACID [Concomitant]
     Active Substance: HYALURONIC ACID
     Indication: Product used for unknown indication
     Dosage: 0.8 UNK
     Dates: start: 20110412, end: 20110412
  73. ITRACONAZOLE [Concomitant]
     Active Substance: ITRACONAZOLE
     Indication: Product used for unknown indication
     Dosage: 20 UNK
     Dates: start: 20110816, end: 20110823
  74. ITRACONAZOLE [Concomitant]
     Active Substance: ITRACONAZOLE
     Dosage: 40 UNK
     Dates: start: 20110516, end: 20110528
  75. ITRACONAZOLE [Concomitant]
     Active Substance: ITRACONAZOLE
     Dosage: 40 UNK
     Dates: start: 20110620, end: 20110717
  76. ITRACONAZOLE [Concomitant]
     Active Substance: ITRACONAZOLE
     Dosage: 40 UNK
     Dates: start: 20110718, end: 20110809
  77. LACTULOSE [Concomitant]
     Active Substance: LACTULOSE
     Indication: Product used for unknown indication
     Dosage: 45 UNK
     Dates: start: 20110426, end: 20110426
  78. LOSARTAN [Concomitant]
     Active Substance: LOSARTAN
     Indication: Product used for unknown indication
     Dosage: 12.5 MILLIGRAM
     Dates: start: 20110415, end: 20110502
  79. LOSARTAN [Concomitant]
     Active Substance: LOSARTAN
     Dosage: 25 MILLIGRAM
     Dates: start: 20110503, end: 20110509
  80. MAGNESIUM OXIDE [Concomitant]
     Active Substance: MAGNESIUM OXIDE
     Indication: Product used for unknown indication
     Dosage: 500 MILLIGRAM
     Dates: start: 20110411, end: 20110411
  81. MAGNESIUM OXIDE [Concomitant]
     Active Substance: MAGNESIUM OXIDE
     Dosage: 1500 MILLIGRAM
     Dates: start: 20110513
  82. MEGESTROL [Concomitant]
     Active Substance: MEGESTROL
     Indication: Product used for unknown indication
     Dosage: 10 UNK
     Dates: start: 20110411, end: 20110413
  83. MEGESTROL [Concomitant]
     Active Substance: MEGESTROL
     Dosage: 10 UNK
     Dates: start: 20110411, end: 20110415
  84. METOCLOPRAMIDE [Concomitant]
     Active Substance: METOCLOPRAMIDE
     Indication: Product used for unknown indication
     Dosage: 30 MILLIGRAM
     Dates: start: 20110425, end: 20110427
  85. METRONIDAZOLE [Concomitant]
     Active Substance: METRONIDAZOLE
     Dosage: 1500 MILLIGRAM
     Dates: start: 20110425, end: 20110501
  86. MIRTAZAPINE [Concomitant]
     Active Substance: MIRTAZAPINE
     Indication: Product used for unknown indication
     Dosage: 22.5 MILLIGRAM
     Dates: start: 20110830
  87. NETILMICIN [Concomitant]
     Active Substance: NETILMICIN
     Indication: Product used for unknown indication
     Dosage: 300 MILLIGRAM
     Dates: start: 20110411, end: 20110411
  88. NIFEDIPINE [Concomitant]
     Active Substance: NIFEDIPINE
     Indication: Product used for unknown indication
     Dosage: 30 MILLIGRAM
     Dates: start: 20110505, end: 20110506
  89. NIFEDIPINE [Concomitant]
     Active Substance: NIFEDIPINE
     Dosage: 40 MILLIGRAM
     Dates: start: 20110502, end: 20110503
  90. NIFEDIPINE [Concomitant]
     Active Substance: NIFEDIPINE
     Dosage: 70 MILLIGRAM
     Dates: start: 20110504, end: 20110504
  91. OXYCODONE [Concomitant]
     Active Substance: OXYCODONE
     Indication: Product used for unknown indication
     Dosage: 20 MILLIGRAM
     Dates: start: 20110411, end: 20110423
  92. ACETAMINOPHEN [Concomitant]
     Active Substance: ACETAMINOPHEN
     Indication: Product used for unknown indication
     Dosage: 650 MILLIGRAM
     Dates: start: 20110502, end: 20110513
  93. ACETAMINOPHEN [Concomitant]
     Active Substance: ACETAMINOPHEN
     Dosage: 1300 MILLIGRAM
     Dates: start: 20110424, end: 20110424
  94. ACETAMINOPHEN [Concomitant]
     Active Substance: ACETAMINOPHEN
     Dosage: 1300 MILLIGRAM
     Dates: start: 20110830, end: 20110830
  95. ACETAMINOPHEN [Concomitant]
     Active Substance: ACETAMINOPHEN
     Dosage: 1950 MILLIGRAM
     Dates: start: 20110514
  96. PHYTONADIONE [Concomitant]
     Active Substance: PHYTONADIONE
     Indication: Product used for unknown indication
     Dosage: 10 MILLIGRAM
     Dates: start: 20110523, end: 20110523
  97. PIPERACILLIN AND TAZOBACTAM [Concomitant]
     Active Substance: PIPERACILLIN SODIUM\TAZOBACTAM SODIUM
     Indication: Product used for unknown indication
     Dosage: 13.5 UNK
     Dates: start: 20110411, end: 20110415
  98. PIPERACILLIN AND TAZOBACTAM [Concomitant]
     Active Substance: PIPERACILLIN SODIUM\TAZOBACTAM SODIUM
     Dosage: 13500 MILLIGRAM
     Dates: start: 20110411, end: 20110415
  99. PIPERACILLIN AND TAZOBACTAM [Concomitant]
     Active Substance: PIPERACILLIN SODIUM\TAZOBACTAM SODIUM
     Dosage: 13500 MILLIGRAM
     Dates: start: 20110428, end: 20110502
  100. PIPERACILLIN AND TAZOBACTAM [Concomitant]
     Active Substance: PIPERACILLIN SODIUM\TAZOBACTAM SODIUM
     Dosage: 13500 MILLIGRAM
     Dates: start: 20110529
  101. POTASSIUM CHLORIDE [Concomitant]
     Active Substance: POTASSIUM CHLORIDE
     Indication: Product used for unknown indication
     Dosage: UNK
     Dates: start: 20110503, end: 20110512
  102. POTASSIUM CHLORIDE [Concomitant]
     Active Substance: POTASSIUM CHLORIDE
     Dosage: UNK
     Dates: start: 20110504, end: 20110509
  103. SODIUM BICARBONATE [Concomitant]
     Active Substance: SODIUM BICARBONATE
     Indication: Product used for unknown indication
     Dosage: 3000 MILLIGRAM
     Dates: start: 20110424, end: 20110502
  104. SODIUM BICARBONATE [Concomitant]
     Active Substance: SODIUM BICARBONATE
     Dosage: 3000 MILLIGRAM
     Dates: start: 20110505, end: 20110508
  105. SODIUM CHLORIDE [Concomitant]
     Active Substance: SODIUM CHLORIDE
     Indication: Product used for unknown indication
     Dosage: 50 UNK
     Dates: start: 20110411, end: 20110411
  106. SODIUM CHLORIDE [Concomitant]
     Active Substance: SODIUM CHLORIDE
     Dosage: 100 UNK
     Dates: start: 20110411, end: 20110411
  107. SODIUM CHLORIDE [Concomitant]
     Active Substance: SODIUM CHLORIDE
     Dosage: 150 UNK
     Dates: start: 20110411, end: 20110415
  108. TELMISARTAN [Concomitant]
     Active Substance: TELMISARTAN
     Indication: Product used for unknown indication
     Dosage: 12.5 UNK
     Dates: start: 20110411, end: 20110415
  109. THEOBROMINE [Concomitant]
     Active Substance: THEOBROMINE
     Indication: Product used for unknown indication
     Dosage: 600 MILLIGRAM
     Dates: start: 20110411, end: 20110411
  110. THEOBROMINE [Concomitant]
     Active Substance: THEOBROMINE
     Dosage: 600 MILLIGRAM
     Dates: start: 20110509
  111. TIMOLOL [Concomitant]
     Active Substance: TIMOLOL
     Indication: Product used for unknown indication
     Dosage: 5 UNK
     Dates: start: 20110430, end: 20110430
  112. TIROPRAMIDE [Concomitant]
     Active Substance: TIROPRAMIDE
     Indication: Product used for unknown indication
     Dosage: 50 MILLIGRAM
     Dates: start: 20110516, end: 20110517
  113. TIROPRAMIDE [Concomitant]
     Active Substance: TIROPRAMIDE
     Dosage: 300 MILLIGRAM
     Dates: start: 20110528, end: 20110528
  114. TRAMADOL [Concomitant]
     Active Substance: TRAMADOL
     Indication: Product used for unknown indication
     Dosage: 150 MILLIGRAM
     Dates: start: 20110411, end: 20110413
  115. TRAMADOL [Concomitant]
     Active Substance: TRAMADOL
     Dosage: 150 MILLIGRAM
     Dates: start: 20110411, end: 20110427
  116. TRANEXAMIC ACID [Concomitant]
     Active Substance: TRANEXAMIC ACID
     Indication: Product used for unknown indication
     Dosage: 750 MILLIGRAM
     Dates: start: 20110411, end: 20110413
  117. TRANEXAMIC ACID [Concomitant]
     Active Substance: TRANEXAMIC ACID
     Dosage: 750 MILLIGRAM
     Dates: start: 20110411, end: 20110421
  118. TRANEXAMIC ACID [Concomitant]
     Active Substance: TRANEXAMIC ACID
     Dosage: 3000 MILLIGRAM
     Dates: start: 20110422
  119. TRAZODONE [Concomitant]
     Active Substance: TRAZODONE HYDROCHLORIDE
     Indication: Product used for unknown indication
     Dosage: 25 MILLIGRAM
     Dates: start: 20110830
  120. TRIMEBUTINE [Concomitant]
     Active Substance: TRIMEBUTINE
     Indication: Product used for unknown indication
     Dosage: 200 MILLIGRAM
     Dates: start: 20110411, end: 20110413

REACTIONS (20)
  - Hypokalaemia [Recovered/Resolved]
  - Hypokalaemia [Recovered/Resolved]
  - Neutropenia [Not Recovered/Not Resolved]
  - Thrombocytopenia [Not Recovered/Not Resolved]
  - Dyspepsia [Recovered/Resolved]
  - Haemorrhoids [Not Recovered/Not Resolved]
  - Hypertension [Recovered/Resolved]
  - Blood pressure increased [Not Recovered/Not Resolved]
  - Haemoglobin decreased [Recovered/Resolved]
  - Neck pain [Not Recovered/Not Resolved]
  - Arthralgia [Not Recovered/Not Resolved]
  - Nausea [Recovered/Resolved]
  - Vomiting [Recovered/Resolved]
  - Pyrexia [Recovered/Resolved]
  - Blood pressure increased [Recovered/Resolved]
  - Pyrexia [Recovered/Resolved]
  - Haemoglobin decreased [Recovered/Resolved]
  - White blood cell count decreased [Not Recovered/Not Resolved]
  - Lacrimation increased [Not Recovered/Not Resolved]
  - Chills [Recovered/Resolved]

NARRATIVE: CASE EVENT DATE: 20110412
